FAERS Safety Report 4322231-1 (Version None)
Quarter: 2004Q1

REPORT INFORMATION
  Report Type: 
  Country: None (occurrence: None)
  Receive Date: 20040323
  Receipt Date: 20040315
  Transmission Date: 20041129
  Serious: Yes (Life-Threatening, Hospitalization)
  Sender: FDA-Public Use
  Company Number: 03-00532

PATIENT
  Age: 6 Year
  Sex: Male

DRUGS (2)
  1. IBUPROFEN [Suspect]
     Indication: PYREXIA
     Dates: start: 20030305, end: 20030306
  2. MOTRIN [Concomitant]

REACTIONS (5)
  - BLINDNESS [None]
  - DYSPNOEA [None]
  - LUNG DISORDER [None]
  - LUNG TRANSPLANT [None]
  - STEVENS-JOHNSON SYNDROME [None]
